FAERS Safety Report 4335921-1 (Version None)
Quarter: 2004Q2

REPORT INFORMATION
  Report Type: 
  Country: None (occurrence: None)
  Receive Date: 20040406
  Receipt Date: 20040331
  Transmission Date: 20050107
  Serious: Yes (Death)
  Sender: FDA-Public Use
  Company Number: STA-AE-04-MTX-135

PATIENT
  Age: 61 Year
  Sex: Female

DRUGS (4)
  1. RHEUMATREX [Suspect]
     Indication: RHEUMATOID ARTHRITIS
     Dosage: 8 MG 1 X PER 1 WK, ORAL
     Route: 048
  2. PREDONINEW (PREDNISOLONE) [Concomitant]
  3. MOBIC [Concomitant]
  4. VOLTAREN [Concomitant]

REACTIONS (4)
  - ABDOMINAL PAIN [None]
  - BONE MARROW DEPRESSION [None]
  - FATIGUE [None]
  - PYREXIA [None]
